FAERS Safety Report 6433374-0 (Version None)
Quarter: 2009Q4

REPORT INFORMATION
  Report Type: 
  Country: None (occurrence: None)
  Receive Date: 20091109
  Receipt Date: 20091102
  Transmission Date: 20100525
  Serious: Yes (Hospitalization)
  Sender: FDA-Public Use
  Company Number: FR-MERCK-0911FRA00001

PATIENT
  Age: 70 Year
  Sex: Female

DRUGS (14)
  1. PRIMAXIN [Suspect]
     Indication: INFECTION
     Route: 042
     Dates: start: 20090401, end: 20090714
  2. CLINDAMYCIN HYDROCHLORIDE [Suspect]
     Indication: INFECTION
     Route: 048
     Dates: start: 20090401, end: 20090714
  3. FOSFOMYCIN CALCIUM [Suspect]
     Indication: INFECTION
     Route: 042
     Dates: start: 20090401, end: 20090617
  4. ALPRAZOLAM [Concomitant]
     Indication: ANXIETY
     Route: 048
  5. REPAGLINIDE [Concomitant]
     Indication: TYPE 2 DIABETES MELLITUS
     Route: 048
  6. INSULIN DETEMIR [Concomitant]
     Indication: TYPE 2 DIABETES MELLITUS
     Route: 058
  7. CALCIUM CARBONATE AND CHOLECALCIFEROL [Concomitant]
     Indication: HYPOVITAMINOSIS
     Route: 065
  8. POTASSIUM CHLORIDE [Concomitant]
     Indication: HYPOKALAEMIA
     Route: 048
  9. ASPIRIN LYSINE [Concomitant]
     Indication: CARDIOVASCULAR EVENT PROPHYLAXIS
     Route: 048
  10. LERCANIDIPINE HYDROCHLORIDE [Concomitant]
     Indication: HYPERTENSION
     Route: 048
  11. ESOMEPRAZOLE MAGNESIUM [Concomitant]
     Indication: GASTROOESOPHAGEAL REFLUX DISEASE
     Route: 048
  12. MIANSERIN HYDROCHLORIDE [Concomitant]
     Indication: DEPRESSION
     Route: 048
  13. ENOXAPARIN SODIUM [Concomitant]
     Indication: THROMBOSIS PROPHYLAXIS
     Route: 058
  14. PERINDOPRIL ARGININE [Concomitant]
     Indication: HYPERTENSION
     Route: 048

REACTIONS (1)
  - CHOLESTASIS [None]
